FAERS Safety Report 14995962 (Version 3)
Quarter: 2018Q3

REPORT INFORMATION
  Report Type: Report from Study
  Country: US (occurrence: US)
  Receive Date: 20180611
  Receipt Date: 20180816
  Transmission Date: 20181010
  Serious: Yes (Other)
  Sender: FDA-Public Use
  Company Number: US-PFIZER INC-2018151112

PATIENT
  Age: 70 Year
  Sex: Female

DRUGS (3)
  1. IBRANCE [Suspect]
     Active Substance: PALBOCICLIB
     Dosage: 75 MG, CYCLIC  (DOSING: 21 DAYS ON/7 DAYS OFF)
     Route: 048
     Dates: start: 20180710, end: 20180723
  2. IBRANCE [Suspect]
     Active Substance: PALBOCICLIB
     Indication: BREAST CANCER FEMALE
     Dosage: 125 MG, CYCLIC (DAILY, 21 DAYS ON/14 DAYS OFF)
     Route: 048
     Dates: start: 20180320, end: 20180417
  3. IBRANCE [Suspect]
     Active Substance: PALBOCICLIB
     Dosage: 125 MG, CYCLIC (21 DAYS ON/7 DAYS OFF)
     Route: 048
     Dates: start: 20180420, end: 20180510

REACTIONS (11)
  - Dyspnoea [Unknown]
  - Seasonal allergy [Unknown]
  - Fatigue [Recovering/Resolving]
  - Hepatic enzyme increased [Not Recovered/Not Resolved]
  - Full blood count decreased [Recovering/Resolving]
  - Abdominal discomfort [Recovered/Resolved]
  - Neutrophil count decreased [Recovering/Resolving]
  - Haemoglobin abnormal [Unknown]
  - Headache [Unknown]
  - White blood cell count decreased [Recovered/Resolved]
  - Hot flush [Not Recovered/Not Resolved]

NARRATIVE: CASE EVENT DATE: 2018
